FAERS Safety Report 10465132 (Version 2)
Quarter: 2014Q3

REPORT INFORMATION
  Report Type: Spontaneous
  Country: US (occurrence: US)
  Receive Date: 20140919
  Receipt Date: 20140926
  Transmission Date: 20150326
  Serious: Yes (Other)
  Sender: FDA-Public Use
  Company Number: US-JNJFOC-20140914802

PATIENT
  Age: 18 Year
  Sex: Male

DRUGS (1)
  1. RISPERDAL [Suspect]
     Active Substance: RISPERIDONE
     Indication: PRODUCT USED FOR UNKNOWN INDICATION
     Route: 048
     Dates: start: 2007, end: 2012

REACTIONS (21)
  - Diabetes mellitus [Unknown]
  - Social phobia [Unknown]
  - Hyperprolactinaemia [Unknown]
  - Sexual dysfunction [Unknown]
  - Emotional distress [Unknown]
  - Anxiety [Unknown]
  - Faecal incontinence [Unknown]
  - Mental impairment [Unknown]
  - Gynaecomastia [Unknown]
  - Psychological trauma [Unknown]
  - Weight increased [Unknown]
  - Endocrine disorder [Unknown]
  - Motor dysfunction [Unknown]
  - Agitation [Unknown]
  - Suicidal ideation [Unknown]
  - Fear [Unknown]
  - Delayed puberty [Unknown]
  - Gastrointestinal disorder [Unknown]
  - Urinary incontinence [Unknown]
  - Dyssomnia [Unknown]
  - Disturbance in attention [Unknown]
